FAERS Safety Report 11229831 (Version 1)
Quarter: 2015Q2

REPORT INFORMATION
  Report Type: Spontaneous
  Country: BR (occurrence: BR)
  Receive Date: 20150630
  Receipt Date: 20150630
  Transmission Date: 20150821
  Serious: Yes (Other)
  Sender: FDA-Public Use
  Company Number: BR-ABBVIE-15P-020-1418364-00

PATIENT
  Age: 6 Year
  Sex: Female
  Weight: 21 kg

DRUGS (3)
  1. DEPAKENE [Suspect]
     Active Substance: VALPROIC ACID
     Indication: EPILEPSY
     Route: 048
     Dates: start: 201501
  2. GARDENAL [Concomitant]
     Active Substance: PHENOBARBITAL
     Indication: EPILEPSY
     Dosage: 30 DROPS DAILY; 15 DROPS IN THE MORNING AND 15 DROPS AT NIGHT
     Route: 048
     Dates: start: 20150112
  3. GARDENAL [Concomitant]
     Active Substance: PHENOBARBITAL
     Route: 048
     Dates: start: 2015

REACTIONS (5)
  - Epilepsy [Recovered/Resolved]
  - Drug hypersensitivity [Unknown]
  - Insomnia [Recovered/Resolved]
  - Drug administered to patient of inappropriate age [Not Recovered/Not Resolved]
  - Adenotonsillectomy [Unknown]

NARRATIVE: CASE EVENT DATE: 201501
